FAERS Safety Report 20118747 (Version 1)
Quarter: 2021Q4

REPORT INFORMATION
  Report Type: Spontaneous
  Country: JP (occurrence: JP)
  Receive Date: 20211126
  Receipt Date: 20211126
  Transmission Date: 20220304
  Serious: Yes (Hospitalization, Other)
  Sender: FDA-Public Use
  Company Number: JP-Eisai-202011525_LUN_P_1

PATIENT
  Age: 6 Decade
  Sex: Male
  Weight: 79 kg

DRUGS (11)
  1. LUNESTA [Suspect]
     Active Substance: ESZOPICLONE
     Dosage: DOSE UNKNOWN
     Route: 048
  2. FLUNITRAZEPAM [Suspect]
     Active Substance: FLUNITRAZEPAM
     Dosage: 2 MG, QD
     Route: 048
  3. FLUNITRAZEPAM [Suspect]
     Active Substance: FLUNITRAZEPAM
     Dosage: 1 MG, QD
     Route: 048
  4. FLUNITRAZEPAM [Suspect]
     Active Substance: FLUNITRAZEPAM
     Dosage: 0.5 MG, QD
     Route: 048
  5. QUETIAPINE FUMARATE [Concomitant]
     Active Substance: QUETIAPINE FUMARATE
     Dosage: 50 MG, QD
     Route: 048
  6. QUETIAPINE FUMARATE [Concomitant]
     Active Substance: QUETIAPINE FUMARATE
     Dosage: 300 MG, QD
     Route: 048
  7. QUETIAPINE FUMARATE [Concomitant]
     Active Substance: QUETIAPINE FUMARATE
     Dosage: 200 MG, QD
     Route: 048
  8. LITHIUM CARBONATE [Concomitant]
     Active Substance: LITHIUM CARBONATE
     Dosage: 700 MG, QD
     Route: 048
  9. LITHIUM CARBONATE [Concomitant]
     Active Substance: LITHIUM CARBONATE
     Dosage: 600 MG, QD
     Route: 048
  10. SUVOREXANT [Concomitant]
     Active Substance: SUVOREXANT
     Dosage: 20 MG, QD
     Route: 048
  11. LEVOMEPROMAZINE MALEATE [Concomitant]
     Active Substance: LEVOMEPROMAZINE MALEATE
     Dosage: 15 MG, QD
     Route: 065

REACTIONS (4)
  - Suicide attempt [Recovered/Resolved]
  - Somnolence [Unknown]
  - Overdose [Unknown]
  - Intentional overdose [Unknown]
